FAERS Safety Report 11410541 (Version 4)
Quarter: 2016Q3

REPORT INFORMATION
  Report Type: Spontaneous
  Country: US (occurrence: US)
  Receive Date: 20150824
  Receipt Date: 20160727
  Transmission Date: 20161109
  Serious: No
  Sender: FDA-Public Use
  Company Number: US-PFIZER INC-2015261492

PATIENT
  Age: 66 Year
  Sex: Female
  Weight: 80 kg

DRUGS (17)
  1. ATIVAN [Concomitant]
     Active Substance: LORAZEPAM
     Dosage: 2 MG, AS NEEDED (2 TIMES EVERY DAY AS NEEDED)
     Route: 048
     Dates: start: 20120508
  2. ONDANSETRON HYDROCHLORIDE. [Concomitant]
     Active Substance: ONDANSETRON HYDROCHLORIDE
     Dosage: 8 MG, AS NEEDED (2 TIMES EVERY DAY AS NEEDED)
     Route: 048
     Dates: start: 20160202
  3. PROMETHAZINE [Concomitant]
     Active Substance: PROMETHAZINE\PROMETHAZINE HYDROCHLORIDE
     Dosage: 25 MG, AS NEEDED (EVERY 4 - 6 HOURS AS NEEDED)
     Route: 048
     Dates: start: 20160202
  4. METFORMIN [Concomitant]
     Active Substance: METFORMIN HYDROCHLORIDE
     Dosage: 1000 MG, 2X/DAY (EVERY DAY WITH MORNING AND EVENING MEALS)
     Route: 048
     Dates: start: 20120730
  5. SYNTHROID [Concomitant]
     Active Substance: LEVOTHYROXINE SODIUM
     Dosage: 75 UG, 1X/DAY
     Route: 048
     Dates: start: 20140730
  6. FEMARA [Suspect]
     Active Substance: LETROZOLE
     Dosage: 2.5 MG, 1X/DAY
     Route: 048
     Dates: start: 20160202
  7. FLONASE [Concomitant]
     Active Substance: FLUTICASONE PROPIONATE
     Dosage: 100 UG, UNK [50 MCG/ACTUATION,   2 SPRAYS EACH NOSTRIL]
     Route: 045
     Dates: start: 20151104
  8. IBRANCE [Suspect]
     Active Substance: PALBOCICLIB
     Dosage: 100 MG, CYCLIC (FOR 21 DAYS ON AND 7 DAYS OFF)
     Route: 048
     Dates: start: 201508
  9. IBRANCE [Suspect]
     Active Substance: PALBOCICLIB
     Indication: BREAST CANCER STAGE IV
     Dosage: 125 MG, UNK
     Dates: start: 20150731
  10. POTASSIUM CHLORIDE. [Concomitant]
     Active Substance: POTASSIUM CHLORIDE
     Dosage: 10 MEQ, ALTERNATE DAY (WITH FOOD)
     Route: 048
     Dates: start: 20160229
  11. IBRANCE [Suspect]
     Active Substance: PALBOCICLIB
     Dosage: 100 MG, UNK
     Dates: start: 201507
  12. FEMARA [Suspect]
     Active Substance: LETROZOLE
     Indication: BREAST CANCER STAGE IV
     Dosage: 2.5 MG, DAILY
     Route: 048
     Dates: start: 201508
  13. XGEVA [Concomitant]
     Active Substance: DENOSUMAB
     Indication: METASTASES TO BONE
     Dosage: 1.7 ML, UNK (120 MG/1.7 ML (70 MG/ML) /EVERY 4 WEEKS)
     Route: 058
     Dates: start: 20140709
  14. CALCIUM 500+D [Concomitant]
     Active Substance: CALCIUM\VITAMIN D
     Dosage: 1 DF, 2X/DAY ((1,250 MG)-200 UNIT TABLET)
     Route: 048
     Dates: start: 20121205
  15. DOXEPIN [Concomitant]
     Active Substance: DOXEPIN
     Dosage: 50 MG, 3X/DAY
     Route: 048
     Dates: start: 20120508
  16. CRESTOR [Concomitant]
     Active Substance: ROSUVASTATIN CALCIUM
     Dosage: 10 MG, 1X/DAY (EVERY BEDTIME)
     Route: 048
     Dates: start: 20120508
  17. OXYCODONE [Concomitant]
     Active Substance: OXYCODONE
     Dosage: 15 MG, AS NEEDED (EVERY 5 HOURS PRN (DO NOT TAKE MORE THAN 5 TABLETS IN ONE DAY))
     Route: 048

REACTIONS (9)
  - Cough [Unknown]
  - Vaginal haemorrhage [Unknown]
  - Nausea [Unknown]
  - Abdominal pain upper [Unknown]
  - Nasopharyngitis [Unknown]
  - Fatigue [Unknown]
  - Breast cancer stage IV [Unknown]
  - White blood cell count decreased [Unknown]
  - Disease progression [Unknown]

NARRATIVE: CASE EVENT DATE: 20150903
